FAERS Safety Report 17833637 (Version 1)
Quarter: 2020Q2

REPORT INFORMATION
  Report Type: Spontaneous
  Country: US (occurrence: US)
  Receive Date: 20200527
  Receipt Date: 20200527
  Transmission Date: 20200714
  Serious: Yes (Death)
  Sender: FDA-Public Use
  Company Number: None

PATIENT
  Age: 73 Year
  Sex: Female
  Weight: 101.4 kg

DRUGS (4)
  1. ENOXAPARIN [Concomitant]
     Active Substance: ENOXAPARIN
     Dates: start: 20200521, end: 20200524
  2. REMDESIVIR FOR EUA [Suspect]
     Active Substance: REMDESIVIR
     Indication: SARS-COV-2 TEST POSITIVE
     Dates: start: 20200521, end: 20200524
  3. INSULIN [Concomitant]
     Active Substance: INSULIN NOS
     Dates: start: 20200521, end: 20200524
  4. METHYLPREDNISOLONE. [Concomitant]
     Active Substance: METHYLPREDNISOLONE
     Dates: start: 20200521, end: 20200524

REACTIONS (1)
  - Death [None]

NARRATIVE: CASE EVENT DATE: 20200525
